FAERS Safety Report 20277925 (Version 1)
Quarter: 2022Q1

REPORT INFORMATION
  Report Type: Spontaneous
  Country: LU (occurrence: LU)
  Receive Date: 20220103
  Receipt Date: 20220103
  Transmission Date: 20220423
  Serious: Yes (Hospitalization)
  Sender: FDA-Public Use
  Company Number: None

PATIENT
  Age: 73 Year
  Sex: Male
  Weight: 77.3 kg

DRUGS (6)
  1. ELOXATIN [Suspect]
     Active Substance: OXALIPLATIN
     Indication: Gastric cancer
     Dosage: 77.82 MG
     Route: 041
     Dates: start: 20211215, end: 20211215
  2. ELOXATIN [Suspect]
     Active Substance: OXALIPLATIN
     Indication: Gastric cancer
  3. FOLIC ACID [Suspect]
     Active Substance: FOLIC ACID
     Indication: Gastric cancer
     Dosage: 247 MG
     Route: 041
     Dates: start: 20211215, end: 20211215
  4. FOLIC ACID [Suspect]
     Active Substance: FOLIC ACID
     Indication: Gastric cancer
  5. DEXAMETHASONE [Concomitant]
     Active Substance: DEXAMETHASONE
     Indication: Premedication
     Dosage: 8 MG, TOTAL
     Route: 041
     Dates: start: 20211215, end: 20211215
  6. ONDANSETRON [Concomitant]
     Active Substance: ONDANSETRON
     Indication: Premedication
     Dosage: 8 MG, TOTAL
     Route: 041
     Dates: start: 20211215, end: 20211215

REACTIONS (2)
  - Infusion related reaction [Recovered/Resolved]
  - Rash [Recovered/Resolved]

NARRATIVE: CASE EVENT DATE: 20211215
